FAERS Safety Report 4486954-6 (Version None)
Quarter: 2004Q3

REPORT INFORMATION
  Report Type: 
  Country: None (occurrence: None)
  Receive Date: 20040921
  Receipt Date: 20031029
  Transmission Date: 20050211
  Serious: Yes (Hospitalization)
  Sender: FDA-Public Use
  Company Number: 163-20785-03100710(0)

PATIENT
  Age: 62 Year
  Sex: Male

DRUGS (9)
  1. THALOMID [Suspect]
     Indication: MULTIPLE MYELOMA
     Dosage: 200 MG, DAILY, ORAL
     Route: 048
     Dates: start: 20030930
  2. DECADRON [Concomitant]
  3. COUMADIN [Concomitant]
  4. ACCUPRIL [Concomitant]
  5. NORVASC [Concomitant]
  6. LOPRESSOR [Concomitant]
  7. PREVACID [Concomitant]
  8. FOSAMAX [Concomitant]
  9. LASIX [Concomitant]

REACTIONS (1)
  - CELLULITIS [None]
